FAERS Safety Report 7215001-8 (Version None)
Quarter: 2011Q1

REPORT INFORMATION
  Report Type: 
  Country: None (occurrence: None)
  Receive Date: 20110107
  Receipt Date: 20100917
  Transmission Date: 20110831
  Serious: No
  Sender: FDA-Public Use
  Company Number: A0868398A

PATIENT
  Sex: Female

DRUGS (8)
  1. METFORMIN [Concomitant]
  2. CHLORDIAZEPOXIDE [Concomitant]
  3. LOVAZA [Suspect]
     Route: 048
  4. EXFORGE [Concomitant]
  5. HYDROCHLOROTHIAZIDE [Concomitant]
  6. PANTOPRAZOLE [Concomitant]
  7. GLYBURIDE [Concomitant]
  8. ACTOS [Concomitant]

REACTIONS (2)
  - DYSPEPSIA [None]
  - PRODUCT QUALITY ISSUE [None]
